FAERS Safety Report 4709440-4 (Version None)
Quarter: 2005Q3

REPORT INFORMATION
  Report Type: 
  Country: None (occurrence: None)
  Receive Date: 20050708
  Receipt Date: 20050613
  Transmission Date: 20060218
  Serious: Yes (Other)
  Sender: FDA-Public Use
  Company Number: CA-GLAXOSMITHKLINE-A0562669A

PATIENT
  Age: 46 Year
  Sex: Female
  Weight: 115 kg

DRUGS (2)
  1. ADVAIR DISKUS 100/50 [Suspect]
     Route: 055
     Dates: start: 20030101, end: 20050501
  2. CLINDAMYCIN [Concomitant]
     Dosage: 300MG FOUR TIMES PER DAY

REACTIONS (2)
  - IMPAIRED HEALING [None]
  - SKIN ULCER [None]
